FAERS Safety Report 18593211 (Version 2)
Quarter: 2020Q4

REPORT INFORMATION
  Report Type: Spontaneous
  Country: IT (occurrence: IT)
  Receive Date: 20201208
  Receipt Date: 20201210
  Transmission Date: 20210114
  Serious: Yes (Other)
  Sender: FDA-Public Use
  Company Number: IT-GILEAD-2020-0508086

PATIENT
  Age: 74 Year
  Sex: Male

DRUGS (3)
  1. CLEXANE T [Concomitant]
     Active Substance: ENOXAPARIN SODIUM
     Dosage: UNK
  2. VEKLURY [Suspect]
     Active Substance: REMDESIVIR
     Indication: COVID-19
     Dosage: 1 DOSAGE FORM, QD
     Route: 042
     Dates: start: 20201105, end: 20201110
  3. DEXAMETHASONE PHOSPHATE [Concomitant]
     Active Substance: DEXAMETHASONE PHOSPHATE
     Dosage: 4 MG/ML

REACTIONS (2)
  - Electrocardiogram ST-T change [Recovered/Resolved]
  - Sinus bradycardia [Recovered/Resolved]

NARRATIVE: CASE EVENT DATE: 20201110
